FAERS Safety Report 7743446-6 (Version None)
Quarter: 2011Q3

REPORT INFORMATION
  Report Type: 
  Country: None (occurrence: None)
  Receive Date: 20110912
  Receipt Date: 20110901
  Transmission Date: 20111222
  Serious: Yes (Disabling)
  Sender: FDA-Public Use
  Company Number: CA-ASTRAZENECA-2011SE43896

PATIENT
  Age: 77 Year
  Sex: Female

DRUGS (12)
  1. CRESTOR [Suspect]
     Route: 048
     Dates: start: 20110711, end: 20110717
  2. ASCORBIC ACID [Concomitant]
  3. PGX [Concomitant]
  4. FLAX SEEN [Concomitant]
  5. EZETROLE [Concomitant]
  6. VITAMIN D [Concomitant]
     Dosage: BID
  7. FLORASTOR [Concomitant]
  8. RAMIPRIL [Concomitant]
  9. MACROBID [Concomitant]
  10. MULTI-VITAMIN [Concomitant]
  11. LOVAZA [Concomitant]
  12. LIPITOR [Concomitant]

REACTIONS (5)
  - MUSCULOSKELETAL DISCOMFORT [None]
  - MUSCULAR WEAKNESS [None]
  - ARTHRALGIA [None]
  - PAIN IN EXTREMITY [None]
  - MYALGIA [None]
